FAERS Safety Report 7650210-5 (Version None)
Quarter: 2011Q3

REPORT INFORMATION
  Report Type: 
  Country: None (occurrence: None)
  Receive Date: 20110802
  Receipt Date: 20110726
  Transmission Date: 20111222
  Serious: Yes (Death)
  Sender: FDA-Public Use
  Company Number: IT-CELGENEUS-083-21880-11073019

PATIENT
  Sex: Female

DRUGS (5)
  1. ANTIBIOTICS [Concomitant]
     Route: 065
  2. REVLIMID [Suspect]
     Dosage: 10 MILLIGRAM
     Route: 048
     Dates: start: 20110301
  3. REVLIMID [Suspect]
     Route: 048
     Dates: start: 20110510, end: 20110701
  4. RED BLOOD CELLS [Concomitant]
     Route: 041
  5. PLATELETS [Concomitant]
     Route: 041

REACTIONS (1)
  - HODGKIN'S DISEASE [None]
